FAERS Safety Report 5139933-X (Version None)
Quarter: 2006Q4

REPORT INFORMATION
  Report Type: 
  Country: None (occurrence: None)
  Receive Date: 20061031
  Receipt Date: 20060817
  Transmission Date: 20070319
  Serious: Yes (Hospitalization)
  Sender: FDA-Public Use
  Company Number: JP-ELI_LILLY_AND_COMPANY-JP200608003703

PATIENT
  Age: 75 Year
  Sex: Female

DRUGS (3)
  1. ZYPREXA [Suspect]
     Dosage: 2.5 MG, DAILY (1/D)
     Route: 048
     Dates: start: 20040201, end: 20060815
  2. ALMARL [Concomitant]
     Indication: ESSENTIAL TREMOR
     Dosage: 20 MG, 2/D
     Route: 048
  3. DIAZEPAM [Concomitant]
     Dosage: 15 MG, 3/D
     Route: 048

REACTIONS (23)
  - ABDOMEN CRUSHING [None]
  - BLOOD CULTURE POSITIVE [None]
  - C-REACTIVE PROTEIN INCREASED [None]
  - CONDITION AGGRAVATED [None]
  - CRUSH INJURY [None]
  - ENTEROCOCCAL INFECTION [None]
  - ESSENTIAL TREMOR [None]
  - FALL [None]
  - FUNGAL INFECTION [None]
  - GLYCOSYLATED HAEMOGLOBIN INCREASED [None]
  - HEAD INJURY [None]
  - HYPERGLYCAEMIA [None]
  - LIMB CRUSHING INJURY [None]
  - LOSS OF CONSCIOUSNESS [None]
  - LUNG INFECTION [None]
  - PATHOGEN RESISTANCE [None]
  - PYREXIA [None]
  - RESPIRATORY TRACT INFECTION [None]
  - RESTLESSNESS [None]
  - RHABDOMYOLYSIS [None]
  - TREMOR [None]
  - URINARY TRACT INFECTION [None]
  - WHITE BLOOD CELL COUNT INCREASED [None]
